FAERS Safety Report 4721582-6 (Version None)
Quarter: 2005Q3

REPORT INFORMATION
  Report Type: 
  Country: None (occurrence: None)
  Receive Date: 20050721
  Receipt Date: 20041208
  Transmission Date: 20060218
  Serious: Yes (Hospitalization)
  Sender: FDA-Public Use
  Company Number: US-BRISTOL-MYERS SQUIBB COMPANY-12790085

PATIENT
  Age: 75 Year
  Sex: Male
  Weight: 145 kg

DRUGS (20)
  1. COUMADIN [Suspect]
     Indication: ATRIAL FIBRILLATION
     Dosage: 2.5 MG ON M-F (LOT# UA0014A NDC# 0056017675)AND 4 MG ON SAT/SUN (LOT# TL925A, NDC#0056017675)
     Route: 048
  2. COUMADIN [Suspect]
     Indication: MYOCARDIAL INFARCTION
     Dosage: 2.5 MG ON M-F (LOT# UA0014A NDC# 0056017675)AND 4 MG ON SAT/SUN (LOT# TL925A, NDC#0056017675)
     Route: 048
  3. LISINOPRIL [Concomitant]
  4. LASIX [Concomitant]
     Dosage: 20 MG DAILY EXCEPT THURSDAY WHEN DOSAGE=40 MG
  5. MULTI-VITAMIN [Concomitant]
  6. ZOCOR [Concomitant]
  7. CARBIDOPA [Concomitant]
  8. INSULIN [Concomitant]
     Dosage: 2 UNITS BEFORE BREAKFAST AND 10 UNITS BEFORE DINNER DAILY
  9. LANTUS [Concomitant]
     Dosage: 28 UNITS AT BEDTIME DAILY
  10. POTASSIUM CHLORIDE [Concomitant]
  11. OMEPRAZOLE [Concomitant]
     Dosage: 10 MG BEFORE DINNER
     Dates: start: 20041130
  12. OMEPRAZOLE [Concomitant]
     Dates: start: 20041130
  13. FUROSEMIDE [Concomitant]
  14. DURAGESIC-100 [Concomitant]
  15. CARVEDILOL [Concomitant]
  16. ALBUTEROL [Concomitant]
     Route: 055
  17. ALBUTEROL [Concomitant]
     Route: 055
  18. IPRATROPIUM BROMIDE [Concomitant]
     Route: 055
  19. TEMAZEPAM [Concomitant]
  20. PROMETHAZINE [Concomitant]
     Route: 030

REACTIONS (2)
  - EPISTAXIS [None]
  - INTERNATIONAL NORMALISED RATIO INCREASED [None]
